FAERS Safety Report 4788151-3 (Version None)
Quarter: 2005Q4

REPORT INFORMATION
  Report Type: 
  Country: None (occurrence: None)
  Receive Date: 20051005
  Receipt Date: 20050928
  Transmission Date: 20060501
  Serious: Yes (Other)
  Sender: FDA-Public Use
  Company Number: CA-JNJFOC-20050503271

PATIENT
  Sex: Male
  Weight: 35.83 kg

DRUGS (1)
  1. CONCERTA [Suspect]
     Route: 048

REACTIONS (3)
  - AGGRESSION [None]
  - MUSCLE TWITCHING [None]
  - SUICIDAL IDEATION [None]
